FAERS Safety Report 18457435 (Version 1)
Quarter: 2020Q4

REPORT INFORMATION
  Report Type: Spontaneous
  Country: US (occurrence: US)
  Receive Date: 20201030
  Receipt Date: 20201030
  Transmission Date: 20210114
  Serious: No
  Sender: FDA-Public Use
  Company Number: US-SA-2020SA305188

PATIENT

DRUGS (1)
  1. DUPIXENT [Suspect]
     Active Substance: DUPILUMAB
     Indication: PRODUCT USE IN UNAPPROVED INDICATION
     Dosage: 300 MG; FREQUENCY: OTHER
     Route: 058
     Dates: start: 20200726

REACTIONS (1)
  - Blister [Unknown]

NARRATIVE: CASE EVENT DATE: 2020
